FAERS Safety Report 9124959 (Version 1)
Quarter: 2013Q1

REPORT INFORMATION
  Report Type: Spontaneous
  Country: US (occurrence: US)
  Receive Date: 20130117
  Receipt Date: 20130117
  Transmission Date: 20140127
  Serious: No
  Sender: FDA-Public Use
  Company Number: US-009507513-1301USA004328

PATIENT
  Sex: 0

DRUGS (2)
  1. EMEND [Suspect]
     Dosage: 150MG IN 150 ML SALINE
     Route: 042
  2. EMEND [Suspect]
     Dosage: 150MG IN 250 ML SALINE
     Route: 042

REACTIONS (1)
  - Infusion site irritation [Unknown]
